FAERS Safety Report 11151379 (Version 1)
Quarter: 2015Q2

REPORT INFORMATION
  Report Type: Spontaneous
  Country: US (occurrence: None)
  Receive Date: 20150528
  Receipt Date: 20150528
  Transmission Date: 20150821
  Serious: Yes (Hospitalization)
  Sender: FDA-Public Use
  Company Number: FK201502384

PATIENT
  Age: 39 Year
  Sex: Male

DRUGS (10)
  1. MAGNESIUM [Concomitant]
     Active Substance: MAGNESIUM
  2. VANCOMYCIN [Concomitant]
     Active Substance: VANCOMYCIN
  3. HYDROXYZINE [Concomitant]
     Active Substance: HYDROXYZINE\HYDROXYZINE HYDROCHLORIDE
  4. CEFTRIAXONE. [Concomitant]
     Active Substance: CEFTRIAXONE
  5. RIFAMPICIN [Concomitant]
     Active Substance: RIFAMPIN
  6. METOCLOPRAMIDE. [Concomitant]
     Active Substance: METOCLOPRAMIDE
  7. ONDANSETRON [Concomitant]
     Active Substance: ONDANSETRON
  8. DEXAMETHASONE. [Suspect]
     Active Substance: DEXAMETHASONE
     Indication: MENINGITIS PNEUMOCOCCAL
  9. PREDNISONE (PREDNISONE) [Suspect]
     Active Substance: PREDNISONE
     Indication: DERMATITIS CONTACT
  10. ACICLOVIR [Concomitant]
     Active Substance: ACYCLOVIR

REACTIONS (2)
  - Meningitis streptococcal [None]
  - Strongyloidiasis [None]
